FAERS Safety Report 11866730 (Version 2)
Quarter: 2016Q1

REPORT INFORMATION
  Report Type: Spontaneous
  Country: IT (occurrence: IT)
  Receive Date: 20151224
  Receipt Date: 20160113
  Transmission Date: 20160526
  Serious: Yes (Other)
  Sender: FDA-Public Use
  Company Number: IT-ROCHE-1683407

PATIENT
  Age: 41 Year
  Sex: Female
  Weight: 80 kg

DRUGS (1)
  1. MABTHERA [Suspect]
     Active Substance: RITUXIMAB
     Indication: NEUROMYELITIS OPTICA SPECTRUM DISORDER
     Dosage: 2 VIALS IN 100 MG 10 ML, FOR 4 WEEKS
     Route: 042
     Dates: start: 20150227, end: 20150227

REACTIONS (2)
  - Immunosuppression [Recovered/Resolved]
  - Cytomegalovirus infection [Recovered/Resolved]

NARRATIVE: CASE EVENT DATE: 20151102
